FAERS Safety Report 8129817-7 (Version None)
Quarter: 2012Q1

REPORT INFORMATION
  Report Type: 
  Country: None (occurrence: None)
  Receive Date: 20120210
  Receipt Date: 20120210
  Transmission Date: 20120608
  Serious: No
  Sender: FDA-Public Use
  Company Number: None

PATIENT
  Sex: Male
  Weight: 108.86 kg

DRUGS (1)
  1. LAMOTRIGINE [Suspect]
     Dosage: 1/2
     Route: 048

REACTIONS (1)
  - PRODUCT LABEL ISSUE [None]
